FAERS Safety Report 23078177 (Version 1)
Quarter: 2023Q4

REPORT INFORMATION
  Report Type: Spontaneous
  Country: DE (occurrence: DE)
  Receive Date: 20231018
  Receipt Date: 20231018
  Transmission Date: 20240109
  Serious: No
  Sender: FDA-Public Use
  Company Number: None

PATIENT
  Sex: Male

DRUGS (1)
  1. RIVASTIGMINE [Suspect]
     Active Substance: RIVASTIGMINE
     Indication: Product used for unknown indication
     Dosage: UNK

REACTIONS (5)
  - Inflammation [Unknown]
  - Erythema [Unknown]
  - Hypersensitivity [Unknown]
  - Device adhesion issue [Unknown]
  - Device malfunction [Unknown]
